FAERS Safety Report 21925462 (Version 1)
Quarter: 2023Q1

REPORT INFORMATION
  Report Type: Spontaneous
  Country: GB (occurrence: GB)
  Receive Date: 20230130
  Receipt Date: 20230130
  Transmission Date: 20230418
  Serious: Yes (Other)
  Sender: FDA-Public Use
  Company Number: GB-Accord-296436

PATIENT
  Sex: Male

DRUGS (4)
  1. RISPERDAL [Suspect]
     Active Substance: RISPERIDONE
     Indication: Behavioural therapy
     Dosage: WEANING. 2.5MG/DAY
     Route: 065
  2. ARIPIPRAZOLE [Suspect]
     Active Substance: ARIPIPRAZOLE
     Indication: Behavioural therapy
     Dosage: 8MG/DAY
  3. MELATONIN [Concomitant]
     Active Substance: MELATONIN
     Indication: Sleep disorder
     Dosage: EVERY NIGHT
  4. VALPROATE SODIUM [Concomitant]
     Active Substance: VALPROATE SODIUM
     Indication: Epilepsy
     Dosage: EVERY NIGHT.?400MG/DAY-EVERY MORNING.

REACTIONS (3)
  - Oculogyric crisis [Recovered/Resolved]
  - Dopamine dysregulation syndrome [Recovered/Resolved]
  - Parkinsonism [Recovered/Resolved]
